FAERS Safety Report 7033647-7 (Version None)
Quarter: 2010Q4

REPORT INFORMATION
  Report Type: 
  Country: None (occurrence: None)
  Receive Date: 20101007
  Receipt Date: 20100302
  Transmission Date: 20110411
  Serious: Yes (Other)
  Sender: FDA-Public Use
  Company Number: HQWYE275807JUN04

PATIENT
  Sex: Female

DRUGS (15)
  1. PREMPRO [Suspect]
     Indication: MENOPAUSE
     Dosage: NOT SPECIFIED
     Route: 048
     Dates: start: 19990101, end: 20020101
  2. PREMPRO [Suspect]
     Indication: HOT FLUSH
  3. PREMPRO [Suspect]
     Indication: NIGHT SWEATS
  4. PROVERA [Suspect]
     Indication: HORMONE REPLACEMENT THERAPY
     Dosage: NOT SPECIFIED
     Route: 065
  5. ESTRACE [Suspect]
     Indication: MENOPAUSE
     Dosage: UNKNOWN
     Route: 065
     Dates: start: 19980101, end: 19990101
  6. ESTRACE [Suspect]
     Indication: HOT FLUSH
  7. ESTRACE [Suspect]
     Indication: NIGHT SWEATS
  8. PROGESTERONE [Suspect]
     Indication: PRODUCT USED FOR UNKNOWN INDICATION
     Dosage: UNKNOWN
     Route: 065
  9. CLIMARA [Suspect]
     Indication: NIGHT SWEATS
     Dosage: UNKNOWN
     Route: 062
     Dates: start: 19980101, end: 19990101
  10. CLIMARA [Suspect]
     Indication: HOT FLUSH
  11. CLIMARA [Suspect]
     Indication: MENOPAUSE
  12. PREMARIN [Suspect]
     Indication: MENOPAUSE
     Dosage: NOT SPECIFIED
     Route: 048
     Dates: start: 19820101, end: 20020101
  13. PREMARIN [Suspect]
     Indication: HOT FLUSH
  14. PREMARIN [Suspect]
     Indication: NIGHT SWEATS
  15. MEDROXYPROGESTERONE ACETATE [Suspect]
     Indication: HORMONE REPLACEMENT THERAPY
     Dosage: NOT SPECIFIED
     Route: 048

REACTIONS (1)
  - CONTRALATERAL BREAST CANCER [None]
